FAERS Safety Report 6165524-8 (Version None)
Quarter: 2009Q2

REPORT INFORMATION
  Report Type: 
  Country: None (occurrence: None)
  Receive Date: 20090423
  Receipt Date: 20090415
  Transmission Date: 20091009
  Serious: Yes (Other)
  Sender: FDA-Public Use
  Company Number: GB-JNJFOC-20090404272

PATIENT
  Age: 46 Year
  Sex: Male

DRUGS (5)
  1. REMICADE [Suspect]
     Route: 042
  2. REMICADE [Suspect]
     Route: 042
  3. REMICADE [Suspect]
     Route: 042
  4. REMICADE [Suspect]
     Route: 042
  5. REMICADE [Suspect]
     Indication: GASTROINTESTINAL DISORDER
     Dosage: THE PATIENT WAS ON INFLIXIMAB FOR A COUPLE OF YEARS AND STOPPED FOR 8 MONTHS.
     Route: 042

REACTIONS (3)
  - EYE DISORDER [None]
  - EYE SWELLING [None]
  - INFUSION RELATED REACTION [None]
